FAERS Safety Report 23583899 (Version 1)
Quarter: 2024Q1

REPORT INFORMATION
  Report Type: Spontaneous
  Country: CN (occurrence: CN)
  Receive Date: 20240301
  Receipt Date: 20240301
  Transmission Date: 20240410
  Serious: Yes (Life-Threatening)
  Sender: FDA-Public Use
  Company Number: CN-BEH-2024169075

PATIENT
  Age: 59 Year
  Sex: Male
  Weight: 59 kg

DRUGS (1)
  1. ALBURX [Suspect]
     Active Substance: ALBUMIN HUMAN
     Indication: Blood albumin decreased
     Dosage: 10 GRAM, QD
     Route: 041
     Dates: start: 20240119, end: 20240119

REACTIONS (12)
  - Anaphylactic shock [Recovering/Resolving]
  - Flushing [Recovering/Resolving]
  - Swelling face [Recovering/Resolving]
  - Loss of consciousness [Recovering/Resolving]
  - Unresponsive to stimuli [Recovering/Resolving]
  - Coma [Recovering/Resolving]
  - Peripheral coldness [Recovering/Resolving]
  - Hyperhidrosis [Recovering/Resolving]
  - Cyanosis [Recovering/Resolving]
  - Wheezing [Recovering/Resolving]
  - Heart sounds abnormal [Recovering/Resolving]
  - Cyanosis [Recovering/Resolving]

NARRATIVE: CASE EVENT DATE: 20240119
